FAERS Safety Report 5592601-2 (Version None)
Quarter: 2008Q1

REPORT INFORMATION
  Report Type: 
  Country: None (occurrence: None)
  Receive Date: 20080114
  Receipt Date: 20080108
  Transmission Date: 20080703
  Serious: Yes (Other)
  Sender: FDA-Public Use
  Company Number: 07102289

PATIENT
  Sex: Female

DRUGS (4)
  1. OVIDE [Suspect]
     Indication: LICE INFESTATION
     Dosage: 1 APP, ONCE, TOPICAL
     Route: 061
  2. ARISTOCORT              (TRIAMCINOLONE) [Concomitant]
  3. SEPTRA [Concomitant]
  4. KEFLEX [Concomitant]

REACTIONS (8)
  - AURICULAR SWELLING [None]
  - DERMATITIS CONTACT [None]
  - DRUG HYPERSENSITIVITY [None]
  - HYPERAESTHESIA [None]
  - LEUKOCYTOSIS [None]
  - PRURITUS [None]
  - SKIN BURNING SENSATION [None]
  - SKIN EXFOLIATION [None]
